FAERS Safety Report 25236370 (Version 8)
Quarter: 2025Q4

REPORT INFORMATION
  Report Type: Report from Study
  Country: JP (occurrence: JP)
  Receive Date: 20250424
  Receipt Date: 20251027
  Transmission Date: 20260118
  Serious: Yes (Hospitalization)
  Sender: DAIICHI
  Company Number: JP-DSJP-DS-2025-137585-JP

PATIENT
  Sex: Female
  Weight: 38 kg

DRUGS (11)
  1. ENHERTU [Suspect]
     Active Substance: FAM-TRASTUZUMAB DERUXTECAN-NXKI
     Indication: Breast cancer
     Dosage: 5.4 MG/KG
     Route: 041
     Dates: start: 20250417, end: 20250417
  2. ENHERTU [Suspect]
     Active Substance: FAM-TRASTUZUMAB DERUXTECAN-NXKI
     Dosage: 5.4 MG/KG
     Route: 041
     Dates: start: 20250508, end: 20250508
  3. ENHERTU [Suspect]
     Active Substance: FAM-TRASTUZUMAB DERUXTECAN-NXKI
     Dosage: 5.4 MG/KG
     Route: 041
     Dates: start: 20250529, end: 20250529
  4. ENHERTU [Suspect]
     Active Substance: FAM-TRASTUZUMAB DERUXTECAN-NXKI
     Dosage: 4.4 MG/KG
     Route: 041
     Dates: start: 20250619, end: 20250619
  5. ENHERTU [Suspect]
     Active Substance: FAM-TRASTUZUMAB DERUXTECAN-NXKI
     Dosage: 4.4 MG/KG
     Route: 041
     Dates: start: 20250710, end: 20250710
  6. ENHERTU [Suspect]
     Active Substance: FAM-TRASTUZUMAB DERUXTECAN-NXKI
     Dosage: 4.4 MG/KG
     Route: 041
     Dates: start: 20250731, end: 20250731
  7. ENHERTU [Suspect]
     Active Substance: FAM-TRASTUZUMAB DERUXTECAN-NXKI
     Dosage: 4.4 MG/KG, ONCE EVERY 4 WK
     Route: 041
     Dates: start: 20250828, end: 20250828
  8. SYMPROIC [Concomitant]
     Active Substance: NALDEMEDINE TOSYLATE
     Indication: Constipation
     Dosage: 2 MG, QD
     Route: 048
     Dates: start: 20250116
  9. CARBOCYSTEINE [Concomitant]
     Active Substance: CARBOCYSTEINE
     Indication: Productive cough
     Dosage: 500 MG, TID
     Route: 048
     Dates: start: 20250427, end: 20250520
  10. OXYCODONE HYDROCHLORIDE [Concomitant]
     Active Substance: OXYCODONE HYDROCHLORIDE
     Indication: Pain
     Dosage: 10 MG, BID
     Route: 048
     Dates: start: 20250427
  11. SODIUM GUALENATE MONOHYDRATE [Concomitant]
     Active Substance: SODIUM GUALENATE MONOHYDRATE
     Indication: Stomatitis
     Dosage: 5 MG, TID
     Route: 050
     Dates: start: 20250508

REACTIONS (9)
  - Pleural effusion [Recovered/Resolved]
  - Pleural effusion [Recovered/Resolved]
  - Nausea [Recovered/Resolved]
  - Pleural effusion [Unknown]
  - Asthenia [Recovering/Resolving]
  - Malaise [Unknown]
  - Decreased appetite [Unknown]
  - Nausea [Unknown]
  - Alopecia [Unknown]

NARRATIVE: CASE EVENT DATE: 20250101
